FAERS Safety Report 25776289 (Version 1)
Quarter: 2025Q3

REPORT INFORMATION
  Report Type: Spontaneous
  Country: US (occurrence: US)
  Receive Date: 20250909
  Receipt Date: 20250909
  Transmission Date: 20251021
  Serious: No
  Sender: CIPLA
  Company Number: US-CIPLA LTD.-2024US13267

PATIENT

DRUGS (1)
  1. DICLOFENAC [Suspect]
     Active Substance: DICLOFENAC
     Indication: Ill-defined disorder
     Dosage: 2 GRAM, BID, 2 GRAMS TOPICALLY 2 TIMES A DAY
     Route: 061

REACTIONS (2)
  - Off label use [Unknown]
  - Product administered at inappropriate site [Unknown]
